FAERS Safety Report 25892845 (Version 1)
Quarter: 2025Q4

REPORT INFORMATION
  Report Type: Spontaneous
  Country: CN (occurrence: CN)
  Receive Date: 20251007
  Receipt Date: 20251007
  Transmission Date: 20260118
  Serious: Yes (Other)
  Sender: BEIGENE
  Company Number: CN-BEIGENE-BGN-2025-016886

PATIENT
  Age: 46 Year

DRUGS (40)
  1. TISLELIZUMAB [Suspect]
     Active Substance: TISLELIZUMAB
     Indication: Nasal cavity cancer
     Dosage: 200 MILLIGRAM
     Route: 041
  2. TISLELIZUMAB [Suspect]
     Active Substance: TISLELIZUMAB
     Dosage: 200 MILLIGRAM
  3. TISLELIZUMAB [Suspect]
     Active Substance: TISLELIZUMAB
     Dosage: 200 MILLIGRAM
  4. TISLELIZUMAB [Suspect]
     Active Substance: TISLELIZUMAB
     Dosage: 200 MILLIGRAM
     Route: 041
  5. TISLELIZUMAB [Suspect]
     Active Substance: TISLELIZUMAB
     Dosage: 200 MILLIGRAM
     Route: 041
  6. TISLELIZUMAB [Suspect]
     Active Substance: TISLELIZUMAB
     Dosage: 200 MILLIGRAM
  7. TISLELIZUMAB [Suspect]
     Active Substance: TISLELIZUMAB
     Dosage: 200 MILLIGRAM
  8. TISLELIZUMAB [Suspect]
     Active Substance: TISLELIZUMAB
     Dosage: 200 MILLIGRAM
     Route: 041
  9. CATEQUENTINIB DIHYDROCHLORIDE [Concomitant]
     Active Substance: CATEQUENTINIB DIHYDROCHLORIDE
     Indication: Nasal cavity cancer
     Dosage: 10 MILLIGRAM
     Route: 048
  10. CATEQUENTINIB DIHYDROCHLORIDE [Concomitant]
     Active Substance: CATEQUENTINIB DIHYDROCHLORIDE
     Dosage: 10 MILLIGRAM
  11. CATEQUENTINIB DIHYDROCHLORIDE [Concomitant]
     Active Substance: CATEQUENTINIB DIHYDROCHLORIDE
     Dosage: 10 MILLIGRAM
  12. CATEQUENTINIB DIHYDROCHLORIDE [Concomitant]
     Active Substance: CATEQUENTINIB DIHYDROCHLORIDE
     Dosage: 10 MILLIGRAM
     Route: 048
  13. CATEQUENTINIB DIHYDROCHLORIDE [Concomitant]
     Active Substance: CATEQUENTINIB DIHYDROCHLORIDE
     Dosage: 10 MILLIGRAM
     Route: 048
  14. CATEQUENTINIB DIHYDROCHLORIDE [Concomitant]
     Active Substance: CATEQUENTINIB DIHYDROCHLORIDE
     Dosage: 10 MILLIGRAM
  15. CATEQUENTINIB DIHYDROCHLORIDE [Concomitant]
     Active Substance: CATEQUENTINIB DIHYDROCHLORIDE
     Dosage: 10 MILLIGRAM
  16. CATEQUENTINIB DIHYDROCHLORIDE [Concomitant]
     Active Substance: CATEQUENTINIB DIHYDROCHLORIDE
     Dosage: 10 MILLIGRAM
     Route: 048
  17. PACLITAXEL [Concomitant]
     Active Substance: PACLITAXEL
     Indication: Nasal cavity cancer
     Dosage: 240 MILLIGRAM
     Route: 041
  18. PACLITAXEL [Concomitant]
     Active Substance: PACLITAXEL
     Dosage: 240 MILLIGRAM
  19. PACLITAXEL [Concomitant]
     Active Substance: PACLITAXEL
     Dosage: 240 MILLIGRAM
  20. PACLITAXEL [Concomitant]
     Active Substance: PACLITAXEL
     Dosage: 240 MILLIGRAM
     Route: 041
  21. PACLITAXEL [Concomitant]
     Active Substance: PACLITAXEL
     Dosage: 240 MILLIGRAM
     Route: 041
  22. PACLITAXEL [Concomitant]
     Active Substance: PACLITAXEL
     Dosage: 240 MILLIGRAM
  23. PACLITAXEL [Concomitant]
     Active Substance: PACLITAXEL
     Dosage: 240 MILLIGRAM
  24. PACLITAXEL [Concomitant]
     Active Substance: PACLITAXEL
     Dosage: 240 MILLIGRAM
     Route: 041
  25. CETUXIMAB [Concomitant]
     Active Substance: CETUXIMAB
     Indication: Nasal cavity cancer
     Dosage: 460 MILLIGRAM
     Route: 041
  26. CETUXIMAB [Concomitant]
     Active Substance: CETUXIMAB
     Dosage: 460 MILLIGRAM
  27. CETUXIMAB [Concomitant]
     Active Substance: CETUXIMAB
     Dosage: 460 MILLIGRAM
  28. CETUXIMAB [Concomitant]
     Active Substance: CETUXIMAB
     Dosage: 460 MILLIGRAM
     Route: 041
  29. CETUXIMAB [Concomitant]
     Active Substance: CETUXIMAB
     Dosage: 460 MILLIGRAM
     Route: 041
  30. CETUXIMAB [Concomitant]
     Active Substance: CETUXIMAB
     Dosage: 460 MILLIGRAM
  31. CETUXIMAB [Concomitant]
     Active Substance: CETUXIMAB
     Dosage: 460 MILLIGRAM
  32. CETUXIMAB [Concomitant]
     Active Substance: CETUXIMAB
     Dosage: 460 MILLIGRAM
     Route: 041
  33. CISPLATIN [Concomitant]
     Active Substance: CISPLATIN
     Indication: Nasal cavity cancer
     Dosage: 45 MILLIGRAM
     Route: 041
  34. CISPLATIN [Concomitant]
     Active Substance: CISPLATIN
     Dosage: 45 MILLIGRAM
  35. CISPLATIN [Concomitant]
     Active Substance: CISPLATIN
     Dosage: 45 MILLIGRAM
  36. CISPLATIN [Concomitant]
     Active Substance: CISPLATIN
     Dosage: 45 MILLIGRAM
     Route: 041
  37. CISPLATIN [Concomitant]
     Active Substance: CISPLATIN
     Dosage: 45 MILLIGRAM
     Route: 041
  38. CISPLATIN [Concomitant]
     Active Substance: CISPLATIN
     Dosage: 45 MILLIGRAM
  39. CISPLATIN [Concomitant]
     Active Substance: CISPLATIN
     Dosage: 45 MILLIGRAM
  40. CISPLATIN [Concomitant]
     Active Substance: CISPLATIN
     Dosage: 45 MILLIGRAM
     Route: 041

REACTIONS (1)
  - Granulocyte count decreased [Recovering/Resolving]
